FAERS Safety Report 4297969-5 (Version None)
Quarter: 2004Q1

REPORT INFORMATION
  Report Type: 
  Country: None (occurrence: None)
  Receive Date: 20040218
  Receipt Date: 20001222
  Transmission Date: 20041129
  Serious: Yes (Other)
  Sender: FDA-Public Use
  Company Number: US-BRISTOL-MYERS SQUIBB COMPANY-10660215

PATIENT
  Age: 57 Year
  Sex: Female

DRUGS (15)
  1. STADOL [Suspect]
     Indication: MIGRAINE
     Route: 045
     Dates: start: 19960101
  2. STADOL [Suspect]
     Indication: MIGRAINE
     Route: 030
  3. SOMA [Concomitant]
  4. LORTAB [Concomitant]
  5. VISTARIL [Concomitant]
  6. NUBAIN [Concomitant]
  7. PHENERGAN [Concomitant]
  8. PERCOCET [Concomitant]
  9. FLEXERIL [Concomitant]
  10. DARVOCET [Concomitant]
  11. PROZAC [Concomitant]
  12. HYDROCODONE + ACETAMINOPHEN [Concomitant]
  13. PROMETHAZINE HCL [Concomitant]
  14. BUSPAR [Concomitant]
  15. AMITRIPTYLINE HCL [Concomitant]

REACTIONS (4)
  - ANXIETY [None]
  - DEPENDENCE [None]
  - DEPRESSION [None]
  - DRUG WITHDRAWAL SYNDROME [None]
